FAERS Safety Report 10154219 (Version 2)
Quarter: 2014Q2

REPORT INFORMATION
  Report Type: Spontaneous
  Country: US (occurrence: US)
  Receive Date: 20140506
  Receipt Date: 20140609
  Transmission Date: 20141212
  Serious: No
  Sender: FDA-Public Use
  Company Number: US-PFIZER INC-2014119017

PATIENT
  Age: 63 Year
  Sex: Male
  Weight: 69.39 kg

DRUGS (2)
  1. TIKOSYN [Suspect]
     Indication: ATRIAL FIBRILLATION
     Dosage: 500 MG, 2X/DAY
     Route: 048
     Dates: start: 20140305
  2. QVAR [Concomitant]
     Indication: SARCOIDOSIS
     Dosage: UNK
     Dates: start: 201310

REACTIONS (3)
  - Rash [Recovered/Resolved]
  - Rash [Not Recovered/Not Resolved]
  - Platelet count decreased [Not Recovered/Not Resolved]
